FAERS Safety Report 6885717-1 (Version None)
Quarter: 2010Q3

REPORT INFORMATION
  Report Type: 
  Country: None (occurrence: None)
  Receive Date: 20100729
  Receipt Date: 20080904
  Transmission Date: 20110219
  Serious: Yes (Other)
  Sender: FDA-Public Use
  Company Number: US-PFIZER INC-2008033012

PATIENT
  Sex: Female

DRUGS (4)
  1. CELEBREX [Suspect]
     Indication: PAIN
     Dates: start: 19980101
  2. NAPROXEN [Suspect]
  3. ATIVAN [Concomitant]
  4. CYTOTEC [Concomitant]

REACTIONS (8)
  - ABDOMINAL DISCOMFORT [None]
  - DENTAL CARE [None]
  - DERMATITIS [None]
  - HERPES ZOSTER [None]
  - JOINT STIFFNESS [None]
  - LICHEN MYXOEDEMATOSUS [None]
  - PAIN [None]
  - SCLERODERMA [None]
